FAERS Safety Report 4476939-8 (Version None)
Quarter: 2004Q4

REPORT INFORMATION
  Report Type: 
  Country: None (occurrence: None)
  Receive Date: 20041013
  Receipt Date: 20040928
  Transmission Date: 20050328
  Serious: Yes (Other)
  Sender: FDA-Public Use
  Company Number: GBS040915669

PATIENT
  Age: 21 Week
  Sex: Female
  Weight: 3 kg

DRUGS (5)
  1. OLANZAPINE [Suspect]
     Route: 064
     Dates: start: 20030624
  2. FOLIC ACID [Concomitant]
     Route: 064
  3. NICORETTE PATCH (NICOTINE) [Concomitant]
  4. CO-PROXAMOL [Concomitant]
  5. CODEINE PHOSPHATE [Concomitant]

REACTIONS (2)
  - CONVULSION [None]
  - DRUG EXPOSURE DURING PREGNANCY [None]
